FAERS Safety Report 6152542-9 (Version None)
Quarter: 2009Q2

REPORT INFORMATION
  Report Type: 
  Country: None (occurrence: None)
  Receive Date: 20090413
  Receipt Date: 20090401
  Transmission Date: 20091009
  Serious: Yes (Other)
  Sender: FDA-Public Use
  Company Number: US-BAYER-200917314NA

PATIENT
  Age: 60 Year
  Sex: Female

DRUGS (6)
  1. AVELOX [Suspect]
     Indication: PNEUMONIA
  2. ZITHROMAX [Suspect]
     Indication: PNEUMONIA
  3. LEVAQUIN [Concomitant]
  4. ROCEPHIN [Concomitant]
  5. GENTAMYCIN SULFATE [Concomitant]
  6. FORTINOL [Concomitant]

REACTIONS (1)
  - PULMONARY FUNCTION TEST DECREASED [None]
